FAERS Safety Report 12048632 (Version 1)
Quarter: 2016Q1

REPORT INFORMATION
  Report Type: Spontaneous
  Country: US (occurrence: US)
  Receive Date: 20160209
  Receipt Date: 20160209
  Transmission Date: 20160526
  Serious: Yes (Hospitalization)
  Sender: FDA-Public Use
  Company Number: US-HOSPIRA-3163758

PATIENT
  Age: 62 Year
  Sex: Female

DRUGS (8)
  1. CEFEPIME [Concomitant]
     Active Substance: CEFEPIME HYDROCHLORIDE
     Indication: CHOLANGITIS
  2. CEFEPIME [Concomitant]
     Active Substance: CEFEPIME HYDROCHLORIDE
     Indication: ABSCESS
  3. COLISTIN [Suspect]
     Active Substance: COLISTIN
     Indication: ABSCESS
  4. COLISTIN [Suspect]
     Active Substance: COLISTIN
     Indication: ABSCESS
  5. GENTAMICIN SULFATE. [Suspect]
     Active Substance: GENTAMICIN SULFATE
     Indication: CHOLANGITIS
     Route: 042
  6. COLISTIN [Suspect]
     Active Substance: COLISTIN
     Indication: CHOLANGITIS
     Dosage: LOADING DOSE
  7. COLISTIN [Suspect]
     Active Substance: COLISTIN
     Indication: CHOLANGITIS
  8. GENTAMICIN SULFATE. [Suspect]
     Active Substance: GENTAMICIN SULFATE
     Indication: ABSCESS

REACTIONS (3)
  - Mental status changes [Unknown]
  - Acute kidney injury [Unknown]
  - Condition aggravated [Unknown]
